FAERS Safety Report 23457680 (Version 1)
Quarter: 2024Q1

REPORT INFORMATION
  Report Type: Spontaneous
  Country: ES (occurrence: ES)
  Receive Date: 20240130
  Receipt Date: 20240130
  Transmission Date: 20240410
  Serious: Yes (Other)
  Sender: FDA-Public Use
  Company Number: ES-AstraZeneca-2024A008345

PATIENT
  Age: 58 Year
  Sex: Male

DRUGS (7)
  1. CANDESARTAN CILEXETIL\HYDROCHLOROTHIAZIDE [Suspect]
     Active Substance: CANDESARTAN CILEXETIL\HYDROCHLOROTHIAZIDE
     Indication: Hypertension
     Dosage: 32/25 MILLIGRAM, QD
     Route: 048
     Dates: start: 20230714, end: 20230717
  2. CANDESARTAN CILEXETIL\HYDROCHLOROTHIAZIDE [Suspect]
     Active Substance: CANDESARTAN CILEXETIL\HYDROCHLOROTHIAZIDE
     Dosage: UNK
     Route: 048
  3. CANDESARTAN CILEXETIL\HYDROCHLOROTHIAZIDE [Suspect]
     Active Substance: CANDESARTAN CILEXETIL\HYDROCHLOROTHIAZIDE
     Dosage: 32/12.5 MILLIGRAM, QD
     Route: 048
     Dates: start: 20230217, end: 20230711
  4. ALLOPURINOL [Concomitant]
     Active Substance: ALLOPURINOL
     Dosage: 1 DOSAGE FORM, Q1HR
     Route: 048
     Dates: start: 20220512
  5. ATORVASTATIN [Concomitant]
     Active Substance: ATORVASTATIN
     Dosage: 1 DOSAGE FORM, Q1HR
     Route: 048
     Dates: start: 20190522
  6. PANTOPRAZOLE [Concomitant]
     Active Substance: PANTOPRAZOLE
     Dosage: 1 DOSAGE FORM, Q1HR
     Route: 048
     Dates: start: 20231126
  7. ASPIRIN [Concomitant]
     Active Substance: ASPIRIN
     Dosage: 1 DOSAGE FORM, Q1HR
     Route: 048
     Dates: start: 20140624

REACTIONS (4)
  - Erythema [Recovered/Resolved]
  - Urticaria [Recovered/Resolved]
  - Pruritus [Recovered/Resolved]
  - Oedema [Recovering/Resolving]

NARRATIVE: CASE EVENT DATE: 20230705
